FAERS Safety Report 5019274-1 (Version None)
Quarter: 2006Q2

REPORT INFORMATION
  Report Type: 
  Country: None (occurrence: None)
  Receive Date: 20060530
  Receipt Date: 20050711
  Transmission Date: 20061013
  Serious: Yes (Other)
  Sender: FDA-Public Use
  Company Number: 2005099810

PATIENT
  Age: 70 Year
  Sex: Female

DRUGS (6)
  1. LYRICA [Suspect]
     Indication: NEURALGIA
     Dosage: 75 MG (75 MF, 1 IN 1 D), ORAL
     Route: 048
     Dates: start: 20050527, end: 20050624
  2. LYRICA [Suspect]
     Indication: POST HERPETIC NEURALGIA
     Dosage: 75 MG (75 MF, 1 IN 1 D), ORAL
     Route: 048
     Dates: start: 20050527, end: 20050624
  3. FELODIPINE [Concomitant]
  4. IRBESARTAN [Concomitant]
  5. PREDNISOLONE [Concomitant]
  6. RISEDRONATE (RISEDRONIC ACID) [Concomitant]

REACTIONS (5)
  - BACK PAIN [None]
  - DIZZINESS [None]
  - FALL [None]
  - INJURY [None]
  - VISION BLURRED [None]
